FAERS Safety Report 5295776-8 (Version None)
Quarter: 2007Q2

REPORT INFORMATION
  Report Type: 
  Country: None (occurrence: None)
  Receive Date: 20070413
  Receipt Date: 20070402
  Transmission Date: 20071010
  Serious: Yes (Hospitalization)
  Sender: FDA-Public Use
  Company Number: PHBS2007ES05864

PATIENT
  Age: 80 Year
  Sex: Male

DRUGS (5)
  1. EXELON [Suspect]
     Indication: DEMENTIA
     Dosage: WRONG DOSAGE
     Route: 048
  2. EXELON [Suspect]
     Dosage: CORRECT DOSAGE
     Route: 048
  3. EXELON [Suspect]
     Dosage: UNKNOWN
     Route: 048
     Dates: start: 20061229
  4. ANTIHYPERTENSIVES [Concomitant]
     Indication: HYPERTENSION
     Dosage: UNKNOWN
     Route: 065
  5. ADIRO [Concomitant]
     Dosage: UNKNOWN
     Route: 048

REACTIONS (5)
  - DISORIENTATION [None]
  - FAECES DISCOLOURED [None]
  - HAEMATEMESIS [None]
  - INCORRECT DOSE ADMINISTERED [None]
  - SLEEP DISORDER [None]
